FAERS Safety Report 19184924 (Version 1)
Quarter: 2021Q2

REPORT INFORMATION
  Report Type: Spontaneous
  Country: AT (occurrence: AT)
  Receive Date: 20210427
  Receipt Date: 20210427
  Transmission Date: 20210717
  Serious: Yes (Hospitalization)
  Sender: FDA-Public Use
  Company Number: AT-ELI_LILLY_AND_COMPANY-AT202104006032

PATIENT
  Age: 67 Year
  Sex: Female
  Weight: 48 kg

DRUGS (18)
  1. VITAMINS WITH MINERALS [Concomitant]
     Active Substance: MINERALS\VITAMINS
     Dosage: 1 DOSAGE FORM, EACH MORNING
  2. APREDNISLON [Concomitant]
     Active Substance: PREDNISOLONE
     Dosage: 5 MG, EACH MORNING
  3. DILTIAZEM. [Concomitant]
     Active Substance: DILTIAZEM
     Dosage: 60 MG, BID
  4. NEBILAN [Concomitant]
     Active Substance: NEBIVOLOL HYDROCHLORIDE
     Dosage: 5 MG, BID
  5. OLUMIANT [Suspect]
     Active Substance: BARICITINIB
     Indication: SCLERODERMA
     Dosage: 4 MG, DAILY
     Route: 048
     Dates: start: 2019
  6. THROMBO ASS [Concomitant]
     Active Substance: ASPIRIN
     Indication: THROMBOCYTOSIS
     Dosage: 100 MG, DAILY
  7. LASIX [Concomitant]
     Active Substance: FUROSEMIDE
     Dosage: 40 MG, BID
  8. OPSUMIT [Concomitant]
     Active Substance: MACITENTAN
     Dosage: 10 MG, EACH MORNING
  9. PANTOLOC [PANTOPRAZOLE] [Concomitant]
     Active Substance: PANTOPRAZOLE SODIUM
     Dosage: 40 MG, EACH MORNING
  10. OCULOTECT FLUID SINE [Concomitant]
     Dosage: UNK UNK, QID
  11. SPIRONO [Concomitant]
     Dosage: 100 MG, EACH MORNING
  12. CITICOLINE [Concomitant]
     Active Substance: CITICOLINE
     Dosage: 2 DOSAGE FORM, EACH MORNING
  13. MARCOUMAR [Concomitant]
     Active Substance: PHENPROCOUMON
     Dosage: 3 MG, UNKNOWN
  14. INHIXA [Concomitant]
     Active Substance: ENOXAPARIN SODIUM
     Dosage: 1 DOSAGE FORM, BID
  15. VALACICLOVIR [Concomitant]
     Active Substance: VALACYCLOVIR HYDROCHLORIDE
     Dosage: 500 MG, BID
  16. THYREX [Concomitant]
     Active Substance: LEVOTHYROXINE SODIUM
     Dosage: 75 U, EACH MORNING
  17. OLEOVIT D3 [Concomitant]
     Active Substance: CHOLECALCIFEROL
     Dosage: 20 DOSAGE FORM, WEEKLY (1/W)
  18. BANEOCIN [BACITRACIN ZINC;NEOMYCIN SULFATE] [Concomitant]
     Dosage: UNK UNK, UNKNOWN

REACTIONS (3)
  - Procedural haemorrhage [Unknown]
  - Thrombocytosis [Unknown]
  - Off label use [Unknown]

NARRATIVE: CASE EVENT DATE: 2019
